FAERS Safety Report 15658664 (Version 3)
Quarter: 2019Q1

REPORT INFORMATION
  Report Type: Spontaneous
  Country: DE (occurrence: DE)
  Receive Date: 20181127
  Receipt Date: 20190321
  Transmission Date: 20190417
  Serious: Yes (Hospitalization)
  Sender: FDA-Public Use
  Company Number: PHHY2018DE164108

PATIENT
  Age: 72 Year
  Sex: Male
  Weight: 95 kg

DRUGS (14)
  1. MADOPAR LT [Suspect]
     Active Substance: BENSERAZIDE HYDROCHLORIDE\LEVODOPA
     Indication: PARKINSON^S DISEASE
     Dosage: UNK (1.1/2 TBL MORNING AT 06.00 HR AND 1 TBL AS NEEDED (INITIAL))
     Route: 048
  2. SEROQUEL [Concomitant]
     Active Substance: QUETIAPINE FUMARATE
     Indication: PRODUCT USED FOR UNKNOWN INDICATION
     Dosage: 25 DF, QD
     Route: 065
  3. PANTOPRAZOL [Suspect]
     Active Substance: PANTOPRAZOLE SODIUM
     Indication: PRODUCT USED FOR UNKNOWN INDICATION
     Dosage: 80 MG, QD (1 TBL MORNING, 1 TBL EVENING (INITIAL))
     Route: 048
     Dates: start: 2013, end: 20170213
  4. MADOPAR LT [Suspect]
     Active Substance: BENSERAZIDE HYDROCHLORIDE\LEVODOPA
     Dosage: UNK (4X1TBL PER DAY--} 5 X 1.75)
     Route: 048
  5. CARDIODORON B [Suspect]
     Active Substance: HERBALS
     Indication: PRODUCT USED FOR UNKNOWN INDICATION
     Dosage: UNK (1 TBL AT 07.00 HRS  (INITIAL))
     Route: 048
  6. LEVOCOMP RETARD [Suspect]
     Active Substance: CARBIDOPA\LEVODOPA
     Dosage: UNK (1 TBL IN THE NIGHT AT 23.00 HRS(INITIAL))
     Route: 048
  7. BISOPROLOL [Suspect]
     Active Substance: BISOPROLOL
     Indication: HYPERTENSION
     Dosage: 10 MG, QD (1 TBL AT 07.00 HRS AND 1 TBL AT 19.00HRS (INITIAL))
     Route: 048
     Dates: start: 2012
  8. LEVOCOMP RETARD [Suspect]
     Active Substance: CARBIDOPA\LEVODOPA
     Indication: PARKINSON^S DISEASE
     Dosage: 200 MG, QD (EVENING AT 23:00(INITIAL))
     Route: 048
  9. DACEPTON [Suspect]
     Active Substance: APOMORPHINE HYDROCHLORIDE
     Indication: PARKINSON^S DISEASE
     Dosage: UNK (84.5 MG DAILY FROM 07.00 TO 22.00 HRS--} 124,0 MG/D 00:00 -23:59)
     Route: 058
  10. RIVOTRIL [Suspect]
     Active Substance: CLONAZEPAM
     Indication: PRODUCT USED FOR UNKNOWN INDICATION
     Dosage: 0.5 MG, QD (0.5 MG, QD 1 TBL AT 23.00HRS (INITIAL))
     Route: 048
     Dates: start: 2010
  11. RIVOTRIL [Suspect]
     Active Substance: CLONAZEPAM
     Dosage: 0.5 MG, QD (1 TBL AT 23.00HRS (INITIAL))
     Route: 048
     Dates: start: 20170213
  12. ONGENTYS [Concomitant]
     Active Substance: OPICAPONE
     Indication: PRODUCT USED FOR UNKNOWN INDICATION
     Dosage: 50 MG, QD
     Route: 065
  13. APO GO PEN [Suspect]
     Active Substance: APOMORPHINE HYDROCHLORIDE
     Indication: PARKINSON^S DISEASE
     Dosage: 5 MG, QD (MORNING (INITIAL))
     Route: 058
     Dates: start: 2013, end: 20170315
  14. MULTAQ [Suspect]
     Active Substance: DRONEDARONE
     Indication: PRODUCT USED FOR UNKNOWN INDICATION
     Dosage: 800 MG, QD (800 MG, UNK 1 TBL AT 07.00HRS AND 1 TBL AT 19.00HRS (INITIAL))
     Route: 065
     Dates: start: 20170122, end: 20170126

REACTIONS (7)
  - Oral discomfort [Unknown]
  - Arrhythmia [Unknown]
  - Nightmare [Unknown]
  - Tooth loss [Unknown]
  - Dyspnoea [Unknown]
  - Nodule [Unknown]
  - Hallucination [Not Recovered/Not Resolved]

NARRATIVE: CASE EVENT DATE: 20170125
